FAERS Safety Report 20167247 (Version 2)
Quarter: 2021Q4

REPORT INFORMATION
  Report Type: Spontaneous
  Country: SI (occurrence: SI)
  Receive Date: 20211209
  Receipt Date: 20211216
  Transmission Date: 20220303
  Serious: Yes (Hospitalization)
  Sender: FDA-Public Use
  Company Number: SI-Santen Korea-2021-SVN-011128

PATIENT
  Age: 85 Year
  Sex: Male

DRUGS (1)
  1. TIMOLOL [Suspect]
     Active Substance: TIMOLOL
     Indication: Product used for unknown indication
     Route: 047

REACTIONS (2)
  - Bronchospasm [Recovered/Resolved]
  - Contraindicated product administered [Unknown]
